FAERS Safety Report 8127198-6 (Version None)
Quarter: 2011Q4

REPORT INFORMATION
  Report Type: 
  Country: None (occurrence: None)
  Receive Date: 20111227
  Receipt Date: 20110622
  Transmission Date: 20120403
  Serious: No
  Sender: FDA-Public Use
  Company Number: PHHY2011US14660

PATIENT
  Age: 41 Year
  Sex: Female

DRUGS (41)
  1. VITAMIN D (ERGOCALCIFEROL) CAPSULE, 50000 U 04/28/2011 TO UNK [Concomitant]
  2. PRISTIQ (DESVENLAFAXINE SUCCINATE) TABLET, 100 MG 02/02/2011 TO UNK [Concomitant]
  3. XANAX (ALPRAZOLAM) TABLET, 2 MG 01/04/2011 TO UNK [Concomitant]
  4. XOPENEX (LEVOSALBUTAMOL) 11/06/2008 TO UNK [Concomitant]
  5. MEDROL (METHYLPREDNISOLONE) TABLET, 4 MG 04/20/2011 TO UNK [Concomitant]
  6. MORPHINE (MORPHINE) TABLET, 15 MG 02/16/2011 TO UNK [Concomitant]
  7. AVINZA (MORPHINE SULFATE), 30 MG 09/01/2009 TO UNK [Concomitant]
  8. NUVIGIL (ARMODAFINIL) TABLET, 250 MG [Concomitant]
  9. MARINOL (DRONABINOL) CAPSULE, 2.5 MG 03/28/2011 TO UNK [Concomitant]
  10. PROVIGIL (MODAFINIL) TABLET, 200 MG 03/28/2011 TO UNK [Concomitant]
  11. TRILEPTAL (OXCARBAZEPINE) TABLET, 300 MG 04/28/2010 TO UNK [Concomitant]
  12. RITALIN LA (METHYLPHENIDATE HYDROCHLORIDE) CAPSULE, 20 MG 02/16/2011 T [Concomitant]
  13. PROTONIX (PANTOPRAZOLE) TABLET, 40 MG 01/04/2011 TO UNK [Concomitant]
  14. LIDOCAINE (LIDOCAINE) PATCH, 5% [Concomitant]
  15. GILENYA [Suspect]
     Indication: MULTIPLE SCLEROSIS
     Dosage: 0.5 MG, QD, ORAL
     Route: 048
     Dates: start: 20110216, end: 20110220
  16. DEXAMETHASONE (DEXAMETHASONE) TABLET, 4 MG [Concomitant]
  17. NEURONTIN (GABAPENTIN) TABLET, 800 MG [Concomitant]
  18. TOPAMAX [Concomitant]
  19. CYMBALTA [Concomitant]
  20. MSIR (MORPHINE SULFATE) CAPSULE, 15 MG [Concomitant]
  21. OXYIR (OXYCODONE HYDROCHLORIDE) CAPSULE, 5 MG [Concomitant]
  22. SKELAXIN (METAXALONE) TABLET, 800 MG 11/06/2008 TO UNK [Concomitant]
  23. VICOPROFEN (HYDROCODONE, HYDROCODONE BITARTRATE, IBUPROFEN) [Concomitant]
  24. ALLEGRA-D (FEXOFENADINE HYDROCHLORIDE, PSEUDOEPHEDRINE HYDROCHLORIDE) [Concomitant]
  25. LYRICA (PREGABALIN) CAPSULE, 50 MG 03/03/2011 TO UNK [Concomitant]
  26. DIAZEPAM (DIAZEPAM) TABLET, 2 MG 02/28/2011 TO UNK [Concomitant]
  27. DURAGESIC (FENTANYL) PATCH, 50 UG 02/16/2011 TO UNK [Concomitant]
  28. AMERGE (NARATRIPTAN HYDROCHLORIDE) TABLET, 2.5 MG 11/09/2010 TO UNK [Concomitant]
  29. RITALIN [Concomitant]
  30. COMPAZINE (PROCHLORPERAZINE EDISYLATE) TABLET, 10 MG 11/06/2008 TO UNK [Concomitant]
  31. DEXAMETHASONE (DEXAMETHASONE) TABLET, 4 MG [Concomitant]
  32. RAZADYNE ER (GALANTAMINE HYDROBROMIDE), 24 MG 03/28/2011 TO UNK [Concomitant]
  33. AVINZA (MORPHINE SULFATE), 30 MG 09/01/2009 TO UNK [Concomitant]
  34. ZANAFLEX (TIZANIDINE HYDROCHLORIDE) CAPSULE, 4 MG [Concomitant]
  35. ASTELIN (AZELASTINE HYDROCHLORIDE) NASAL SPRAY, 137 UG [Concomitant]
  36. FLOMAX (TAMSULOSIN HYDROCHLORIDE) CAPSULE, 0.4 MG 04/28/2011 TO UNK [Concomitant]
  37. DEXAMETHASONE (DEXAMETHASONE) TABLET 4 MG 04/21/2011 TO UNK [Concomitant]
  38. FAMPRIDINE (FAMPRIDINE) 12/14/2010 TO UNK [Concomitant]
  39. MESTINON (PYRIDOSTIGMINE BROMIDE) TABLET, 60 MG 12/06/2010 TO UNK [Concomitant]
  40. SYNTHROID (LEVOTHYROXINE SODIUM( TABLET, 75 UG 02/11/2010 TO UNK [Concomitant]
  41. ACTIVELLA [Concomitant]

REACTIONS (4)
  - PYREXIA [None]
  - BACK PAIN [None]
  - FLUSHING [None]
  - HEADACHE [None]
